FAERS Safety Report 6733379-6 (Version None)
Quarter: 2010Q2

REPORT INFORMATION
  Report Type: 
  Country: None (occurrence: None)
  Receive Date: 20100520
  Receipt Date: 20100511
  Transmission Date: 20101027
  Serious: Yes (Hospitalization, Other)
  Sender: FDA-Public Use
  Company Number: BR-PFIZER INC-2010059262

PATIENT
  Age: 59 Year
  Sex: Female
  Weight: 58 kg

DRUGS (6)
  1. SUTENT [Suspect]
     Indication: RENAL CANCER METASTATIC
     Dosage: 50 MG, 1X/DAY
     Route: 048
     Dates: start: 20100416, end: 20100429
  2. PROPRANOLOL [Concomitant]
     Indication: HYPERTENSION
     Dosage: 40 MG, UNK
  3. METHYLDOPA [Concomitant]
     Indication: HYPERTENSION
     Dosage: 250 MG, UNK
     Dates: start: 20060101
  4. PARACETAMOL [Concomitant]
     Indication: PAIN
     Dosage: 750 MG, UNK
  5. MORPHINE [Concomitant]
     Indication: PAIN
     Dosage: 15 MG, 4X/DAY, EVERY 6 HOURS
  6. GLIBENCLAMIDE [Concomitant]
     Indication: DIABETES MELLITUS
     Dosage: 5 MG, UNK
     Dates: start: 20060101

REACTIONS (11)
  - AGITATION [None]
  - BLOOD PRESSURE FLUCTUATION [None]
  - BODY TEMPERATURE DECREASED [None]
  - CEREBRAL ISCHAEMIA [None]
  - FATIGUE [None]
  - FORMICATION [None]
  - HALLUCINATION [None]
  - MOUTH INJURY [None]
  - PARALYSIS [None]
  - SOMNOLENCE [None]
  - SPEECH DISORDER [None]
